FAERS Safety Report 6667249-9 (Version None)
Quarter: 2010Q2

REPORT INFORMATION
  Report Type: 
  Country: None (occurrence: None)
  Receive Date: 20100401
  Receipt Date: 20100401
  Transmission Date: 20101027
  Serious: Yes (Life-Threatening)
  Sender: FDA-Public Use
  Company Number: None

PATIENT
  Age: 42 Year
  Sex: Female
  Weight: 56.2 kg

DRUGS (1)
  1. ETANERCEPT 50MG/ML LOT # 1015752 [Suspect]
     Indication: RHEUMATOID ARTHRITIS
     Dosage: 50MG ONCE SQ
     Route: 058
     Dates: start: 20100309, end: 20100312

REACTIONS (1)
  - CARDIOMYOPATHY ACUTE [None]
